FAERS Safety Report 7305596-8 (Version None)
Quarter: 2011Q1

REPORT INFORMATION
  Report Type: 
  Country: None (occurrence: None)
  Receive Date: 20110210
  Receipt Date: 20110209
  Transmission Date: 20110831
  Serious: Yes (Death, Hospitalization)
  Sender: FDA-Public Use
  Company Number: 2009SP013910

PATIENT
  Age: 77 Year
  Sex: Female
  Weight: 74.8 kg

DRUGS (1)
  1. TEMOZOLOMIDE [Suspect]
     Indication: GLIOBLASTOMA
     Dosage: 240 MG;
     Dates: start: 20090505

REACTIONS (7)
  - THROMBOCYTOPENIA [None]
  - BLOOD GLUCOSE ABNORMAL [None]
  - GENERAL PHYSICAL HEALTH DETERIORATION [None]
  - HAEMOGLOBIN DECREASED [None]
  - FALL [None]
  - INCONTINENCE [None]
  - LYMPHOPENIA [None]
